FAERS Safety Report 4647465-8 (Version None)
Quarter: 2005Q2

REPORT INFORMATION
  Report Type: 
  Country: None (occurrence: None)
  Receive Date: 20050426
  Receipt Date: 20050405
  Transmission Date: 20051028
  Serious: No
  Sender: FDA-Public Use
  Company Number: AU_050408485

PATIENT
  Age: 48 Year
  Sex: Male

DRUGS (3)
  1. ZYPREXA [Suspect]
     Indication: BIPOLAR DISORDER
     Dosage: 5 MG/TWICE DAY
     Dates: start: 20041104, end: 20041210
  2. OLANZAPINE [Suspect]
     Indication: BIPOLAR DISORDER
     Dosage: 5 MG/TWICE DAY
     Dates: start: 20050225, end: 20050302
  3. CLOPIXOL (ZUCLOPENTHIXOL) [Concomitant]

REACTIONS (3)
  - LYMPHOCYTE COUNT INCREASED [None]
  - NEUTROPENIA [None]
  - WHITE BLOOD CELL COUNT DECREASED [None]
